FAERS Safety Report 24644488 (Version 1)
Quarter: 2024Q4

REPORT INFORMATION
  Report Type: Spontaneous
  Country: BG (occurrence: BG)
  Receive Date: 20241121
  Receipt Date: 20241121
  Transmission Date: 20250115
  Serious: Yes (Hospitalization)
  Sender: BOEHRINGER INGELHEIM
  Company Number: BG-BoehringerIngelheim-2024-BI-063049

PATIENT
  Age: 85 Year
  Sex: Male

DRUGS (5)
  1. TELMISARTAN [Suspect]
     Active Substance: TELMISARTAN
     Indication: Hypertension
  2. CLOPIDOGREL [Concomitant]
     Active Substance: CLOPIDOGREL BISULFATE
     Indication: Hypertension
  3. nebivolol/hydrochlorothiazide 5/12,5 mg [Concomitant]
     Indication: Product used for unknown indication
  4. METFORMIN HYDROCHLORIDE [Concomitant]
     Active Substance: METFORMIN HYDROCHLORIDE
     Indication: Product used for unknown indication
  5. INCRUSE ELLIPTA [Concomitant]
     Active Substance: UMECLIDINIUM BROMIDE
     Indication: Product used for unknown indication
     Route: 055

REACTIONS (7)
  - General physical health deterioration [Unknown]
  - Cyanosis [Unknown]
  - Orthopnoea [Unknown]
  - Tachypnoea [Unknown]
  - Peripheral swelling [Unknown]
  - Dyspnoea paroxysmal nocturnal [Unknown]
  - Dyspnoea exertional [Unknown]
